FAERS Safety Report 9389072 (Version 3)
Quarter: 2013Q3

REPORT INFORMATION
  Report Type: Report from Study
  Country: JP (occurrence: JP)
  Receive Date: 20130708
  Receipt Date: 20130823
  Transmission Date: 20140515
  Serious: Yes (Hospitalization, Other)
  Sender: FDA-Public Use
  Company Number: JP-GILEAD-2013-0077747

PATIENT
  Age: 69 Year
  Sex: Female

DRUGS (19)
  1. AMBRISENTAN [Suspect]
     Indication: PULMONARY ARTERIAL HYPERTENSION
     Dosage: 7.5 MG, QD
     Route: 048
     Dates: start: 20120610, end: 20130628
  2. AMBRISENTAN [Suspect]
     Dosage: 5 MG, QD
     Route: 048
     Dates: start: 20120407, end: 20120609
  3. AMBRISENTAN [Suspect]
     Dosage: 2.5 MG, QD
     Route: 048
     Dates: start: 20120331, end: 20120406
  4. SILDENAFIL CITRATE [Concomitant]
     Indication: PULMONARY ARTERIAL HYPERTENSION
     Dosage: UNK
     Route: 048
     Dates: start: 20130524, end: 20130603
  5. WARFARIN [Concomitant]
     Indication: PRODUCT USED FOR UNKNOWN INDICATION
     Route: 048
  6. WARFARIN [Concomitant]
     Route: 048
  7. PRORENAL [Concomitant]
     Indication: PRODUCT USED FOR UNKNOWN INDICATION
     Dosage: UNK
     Route: 048
  8. PRORENAL [Concomitant]
     Route: 048
  9. AVAPRO [Concomitant]
     Route: 048
  10. AVAPRO [Concomitant]
     Route: 048
  11. AVAPRO [Concomitant]
     Route: 048
  12. ALDACTONE A [Concomitant]
     Dosage: UNK
     Route: 048
  13. ALDACTONE A [Concomitant]
     Route: 048
  14. ALDACTONE A [Concomitant]
     Route: 048
  15. DIGOXIN [Concomitant]
     Route: 048
  16. DIGOXIN [Concomitant]
     Route: 048
  17. DIGOXIN [Concomitant]
     Route: 048
  18. TERIBONE [Concomitant]
     Route: 058
     Dates: start: 20130803
  19. CALCITAROL [Concomitant]
     Route: 048
     Dates: start: 20120816

REACTIONS (3)
  - Platelet count decreased [Recovering/Resolving]
  - Anaemia [Recovered/Resolved]
  - Osteoporosis [Unknown]
